FAERS Safety Report 20143639 (Version 1)
Quarter: 2021Q4

REPORT INFORMATION
  Report Type: Report from Study
  Country: FR (occurrence: FR)
  Receive Date: 20211203
  Receipt Date: 20211203
  Transmission Date: 20220303
  Serious: Yes (Other)
  Sender: FDA-Public Use
  Company Number: FR-SUN PHARMACEUTICAL INDUSTRIES LTD-2021RR-319487

PATIENT
  Age: 30 Year
  Sex: Male
  Weight: 170 kg

DRUGS (6)
  1. BACLOFEN [Suspect]
     Active Substance: BACLOFEN
     Indication: Prophylaxis
     Dosage: UNK
     Route: 065
  2. MIDAZOLAM [Suspect]
     Active Substance: MIDAZOLAM
     Indication: Prophylaxis
     Dosage: 10 MILLIGRAM
     Route: 065
  3. DIAZEPAM [Suspect]
     Active Substance: DIAZEPAM
     Indication: Prophylaxis
     Dosage: 10 MILLIGRAM
     Route: 065
  4. CLONAZEPAM [Suspect]
     Active Substance: CLONAZEPAM
     Indication: Prophylaxis
     Dosage: 1 MILLIGRAM
     Route: 065
  5. BACLOFEN [Suspect]
     Active Substance: BACLOFEN
     Indication: Product used for unknown indication
     Dosage: 20 MILLIGRAM
     Route: 048
  6. BACLOFEN [Suspect]
     Active Substance: BACLOFEN
     Dosage: TITRATED WITH BACLOFEN AT ORAL DOSES OF 20 MG, UP TO A TOTAL DOSE OF 180 MG
     Route: 048

REACTIONS (2)
  - Toxicity to various agents [Unknown]
  - Coma [Unknown]
